FAERS Safety Report 23878855 (Version 4)
Quarter: 2024Q3

REPORT INFORMATION
  Report Type: Spontaneous
  Country: US (occurrence: US)
  Receive Date: 20240521
  Receipt Date: 20240930
  Transmission Date: 20241016
  Serious: No
  Sender: PFIZER
  Company Number: US-PFIZER INC-202400130367

PATIENT
  Age: 5 Year
  Sex: Male

DRUGS (1)
  1. GENOTROPIN [Suspect]
     Active Substance: SOMATROPIN
     Indication: Growth hormone deficiency
     Dosage: 0.6 UNKNOWN UNIT ONCE

REACTIONS (4)
  - Drug dose omission by device [Unknown]
  - Device use error [Unknown]
  - Device leakage [Unknown]
  - Device breakage [Unknown]
